FAERS Safety Report 6504176-1 (Version None)
Quarter: 2009Q4

REPORT INFORMATION
  Report Type: 
  Country: None (occurrence: None)
  Receive Date: 20091217
  Receipt Date: 20091209
  Transmission Date: 20100525
  Serious: Yes (Other)
  Sender: FDA-Public Use
  Company Number: FR-ABBOTT-09P-056-0611331-00

PATIENT
  Age: 42 Year
  Sex: Female
  Weight: 59 kg

DRUGS (2)
  1. HUMIRA [Suspect]
     Indication: CROHN'S DISEASE
     Dosage: 80 MG AS LOADING DOSE
     Route: 058
     Dates: start: 20091001
  2. CORTANCYL [Concomitant]
     Indication: ENTEROCOLITIS HAEMORRHAGIC
     Route: 048

REACTIONS (3)
  - AFFECTIVE DISORDER [None]
  - HEADACHE [None]
  - PARAESTHESIA [None]
